FAERS Safety Report 10805349 (Version 1)
Quarter: 2015Q1

REPORT INFORMATION
  Report Type: Spontaneous
  Country: US (occurrence: US)
  Receive Date: 20150217
  Receipt Date: 20150217
  Transmission Date: 20150721
  Serious: Yes (Other)
  Sender: FDA-Public Use
  Company Number: US-SA-2015SA018071

PATIENT
  Age: 86 Year
  Sex: Male

DRUGS (10)
  1. CLOPIDOGREL BISULFATE. [Suspect]
     Active Substance: CLOPIDOGREL BISULFATE
     Indication: THROMBOSIS PROPHYLAXIS
     Dosage: LOADING DOSE
     Route: 065
  2. EPTIFIBATIDE [Concomitant]
     Active Substance: EPTIFIBATIDE
  3. FENTANYL. [Concomitant]
     Active Substance: FENTANYL
  4. NITROGLYCERINE [Concomitant]
     Active Substance: NITROGLYCERIN
  5. ATENOLOL. [Concomitant]
     Active Substance: ATENOLOL
  6. UNFRACTIONATED HEPARIN [Concomitant]
     Active Substance: HEPARIN SODIUM
  7. AMLODIPINE [Concomitant]
     Active Substance: AMLODIPINE BESYLATE
  8. CLOPIDOGREL BISULFATE. [Suspect]
     Active Substance: CLOPIDOGREL BISULFATE
     Indication: THROMBOSIS PROPHYLAXIS
     Route: 048
  9. ASPIRIN. [Concomitant]
     Active Substance: ASPIRIN
  10. MIDAZOLAM [Concomitant]
     Active Substance: MIDAZOLAM\MIDAZOLAM HYDROCHLORIDE

REACTIONS (8)
  - Neutropenia [Recovered/Resolved]
  - Neutrophil count decreased [Recovered/Resolved]
  - Lymphocyte count increased [Recovered/Resolved]
  - White blood cell count decreased [Recovered/Resolved]
  - Haemoglobin decreased [Recovered/Resolved]
  - Monocyte count increased [Recovered/Resolved]
  - Basophil count increased [Recovered/Resolved]
  - Bone marrow toxicity [Recovered/Resolved]
